FAERS Safety Report 10214095 (Version 2)
Quarter: 2014Q3

REPORT INFORMATION
  Report Type: Spontaneous
  Country: FR (occurrence: FR)
  Receive Date: 20140603
  Receipt Date: 20140703
  Transmission Date: 20150326
  Serious: Yes (Other)
  Sender: FDA-Public Use
  Company Number: FR-CELGENEUS-056-POMAL-14053872

PATIENT
  Sex: Female

DRUGS (5)
  1. IMNOVID [Suspect]
     Active Substance: POMALIDOMIDE
     Indication: PLASMA CELL MYELOMA
     Route: 048
  2. CORTANCYL [Concomitant]
     Active Substance: PREDNISONE
     Indication: URINARY TRACT INFECTION
     Route: 065
  3. IMNOVID [Suspect]
     Active Substance: POMALIDOMIDE
     Indication: AMYLOIDOSIS
     Route: 048
  4. IMNOVID [Suspect]
     Active Substance: POMALIDOMIDE
     Route: 048
  5. ALKERAN [Concomitant]
     Active Substance: MELPHALAN
     Indication: URINARY TRACT INFECTION
     Route: 065

REACTIONS (5)
  - Constipation [Unknown]
  - Dyspnoea [Unknown]
  - Ileus paralytic [Unknown]
  - Oedema peripheral [Unknown]
  - Infection [Unknown]
